FAERS Safety Report 11576714 (Version 1)
Quarter: 2015Q3

REPORT INFORMATION
  Report Type: Spontaneous
  Country: US (occurrence: US)
  Receive Date: 20150916
  Receipt Date: 20150916
  Transmission Date: 20151125
  Serious: No
  Sender: FDA-Public Use
  Company Number: US-ELI_LILLY_AND_COMPANY-US201305007641

PATIENT
  Weight: 68.03 kg

DRUGS (1)
  1. HUMALOG [Suspect]
     Active Substance: INSULIN LISPRO
     Dosage: UNK

REACTIONS (9)
  - Blood glucose increased [Not Recovered/Not Resolved]
  - Thirst [Unknown]
  - Pain [Unknown]
  - Nausea [Unknown]
  - Pollakiuria [Unknown]
  - Incorrect dose administered [Recovered/Resolved]
  - Vision blurred [Unknown]
  - Blood glucose decreased [Recovered/Resolved]
  - Underdose [Unknown]
